FAERS Safety Report 6314638-8 (Version None)
Quarter: 2009Q3

REPORT INFORMATION
  Report Type: 
  Country: None (occurrence: None)
  Receive Date: 20090819
  Receipt Date: 20090528
  Transmission Date: 20100115
  Serious: No
  Sender: FDA-Public Use
  Company Number: US-BAYER-200922186NA

PATIENT
  Age: 24 Year
  Sex: Female

DRUGS (1)
  1. MIRENA [Suspect]
     Indication: CONTRACEPTION
     Dosage: AS USED: 20 ?G
     Route: 015
     Dates: start: 20081101

REACTIONS (7)
  - AMENORRHOEA [None]
  - FATIGUE [None]
  - LIBIDO DECREASED [None]
  - METRORRHAGIA [None]
  - MOOD ALTERED [None]
  - POST PROCEDURAL HAEMORRHAGE [None]
  - VAGINAL DISCHARGE [None]
